FAERS Safety Report 8336764 (Version 3)
Quarter: 2012Q4

REPORT INFORMATION
  Report Type: Report from Study
  Country: US (occurrence: US)
  Receive Date: 20120113
  Receipt Date: 20121001
  Transmission Date: 20130627
  Serious: Yes (Death, Hospitalization, Other)
  Sender: FDA-Public Use
  Company Number: US-SANOFI-AVENTIS-2012SA001508

PATIENT
  Age: 57 Year
  Sex: Female
  Weight: 81.18 kg

DRUGS (8)
  1. DOCETAXEL [Suspect]
     Indication: NON-SMALL CELL LUNG CANCER STAGE IV
     Route: 042
     Dates: start: 20111115, end: 20111206
  2. BLINDED THERAPY [Suspect]
     Indication: NON-SMALL CELL LUNG CANCER STAGE IV
     Route: 065
     Dates: start: 20111115, end: 20111206
  3. LORAZEPAM [Concomitant]
     Indication: ANXIETY
     Dates: start: 20110524
  4. ESOMEPRAZOLE [Concomitant]
     Indication: ACID REFLUX (ESOPHAGEAL)
     Dates: start: 20110614
  5. OXYCODONE [Concomitant]
     Indication: PAIN
     Dates: start: 20111024
  6. PROCHLORPERAZINE [Concomitant]
     Indication: NAUSEA
     Dates: start: 20111107
  7. ALBUTEROL [Concomitant]
     Indication: SHORTNESS OF BREATH
     Dates: start: 20111209
  8. OXYCODONE HYDROCHLORIDE/PARACETAMOL [Concomitant]
     Indication: PAIN
     Dates: start: 20110614

REACTIONS (4)
  - Pneumonia [Not Recovered/Not Resolved]
  - Respiratory failure [Fatal]
  - Thrombocytopenia [Not Recovered/Not Resolved]
  - Fatigue [Not Recovered/Not Resolved]
